FAERS Safety Report 7873570-9 (Version None)
Quarter: 2011Q4

REPORT INFORMATION
  Report Type: 
  Country: None (occurrence: None)
  Receive Date: 20111030
  Receipt Date: 20110505
  Transmission Date: 20120403
  Serious: No
  Sender: FDA-Public Use
  Company Number: US-AMGEN-USASP2011023707

PATIENT
  Age: 52 Year
  Sex: Male
  Weight: 113.38 kg

DRUGS (1)
  1. ENBREL [Suspect]
     Indication: PRODUCT USED FOR UNKNOWN INDICATION

REACTIONS (2)
  - MALABSORPTION FROM INJECTION SITE [None]
  - INJECTION SITE HAEMATOMA [None]
